FAERS Safety Report 9173703 (Version 1)
Quarter: 2013Q1

REPORT INFORMATION
  Report Type: Spontaneous
  Country: US (occurrence: None)
  Receive Date: 20130314
  Receipt Date: 20130314
  Transmission Date: 20140127
  Serious: Yes (Other)
  Sender: FDA-Public Use
  Company Number: ADR-2013-00417

PATIENT
  Age: 51 Year
  Sex: Female

DRUGS (1)
  1. BACLOFEN INTRATHECAL [Suspect]
     Indication: PAIN

REACTIONS (21)
  - Post lumbar puncture syndrome [None]
  - Headache [None]
  - Nausea [None]
  - Inadequate analgesia [None]
  - Abnormal sleep-related event [None]
  - Aggression [None]
  - Abnormal behaviour [None]
  - Vomiting [None]
  - Diarrhoea [None]
  - Stress [None]
  - Screaming [None]
  - Delusion [None]
  - Suicidal ideation [None]
  - Muscle spasms [None]
  - Pain in extremity [None]
  - Neuropathy peripheral [None]
  - Blood pressure increased [None]
  - Withdrawal syndrome [None]
  - Accident [None]
  - Memory impairment [None]
  - Altered state of consciousness [None]
